FAERS Safety Report 6073948-2 (Version None)
Quarter: 2009Q1

REPORT INFORMATION
  Report Type: 
  Country: None (occurrence: None)
  Receive Date: 20090211
  Receipt Date: 20090206
  Transmission Date: 20090719
  Serious: Yes (Death, Hospitalization, Other)
  Sender: FDA-Public Use
  Company Number: PHHY2009CH04214

PATIENT
  Age: 94 Year
  Sex: Male

DRUGS (1)
  1. VOLTAREN [Suspect]
     Indication: NECK PAIN
     Dosage: UNK
     Dates: start: 20081125, end: 20081201

REACTIONS (10)
  - CARDIAC FAILURE [None]
  - CARDIAC FIBRILLATION [None]
  - CARDIAC OUTPUT DECREASED [None]
  - CONFUSIONAL STATE [None]
  - DYSPNOEA [None]
  - LUNG INFECTION [None]
  - LUNG INFILTRATION [None]
  - MULTI-ORGAN FAILURE [None]
  - RENAL FAILURE CHRONIC [None]
  - URINE OUTPUT DECREASED [None]
